FAERS Safety Report 8798553 (Version 2)
Quarter: 2012Q4

REPORT INFORMATION
  Report Type: 
  Country: US (occurrence: US)
  Receive Date: 20120917
  Receipt Date: 20121109
  Transmission Date: 20130627
  Serious: Yes (Hospitalization)
  Sender: FDA-Public Use
  Company Number: US-PFIZER INC-2012226123

PATIENT
  Age: 52 Year
  Sex: Female
  Weight: 99.77 kg

DRUGS (3)
  1. LIPITOR [Suspect]
     Indication: HYPERLIPIDEMIA
     Dosage: 40 mg, 1x/day
     Route: 048
     Dates: start: 201204, end: 20120827
  2. NIACIN [Suspect]
     Dosage: UNK
     Route: 048
  3. SYNTHROID [Concomitant]
     Dosage: UNK

REACTIONS (2)
  - Pancreatitis [Not Recovered/Not Resolved]
  - Vomiting [Unknown]
